FAERS Safety Report 4639274-0 (Version None)
Quarter: 2005Q2

REPORT INFORMATION
  Report Type: 
  Country: None (occurrence: None)
  Receive Date: 20050418
  Receipt Date: 20050404
  Transmission Date: 20051028
  Serious: Yes (Hospitalization)
  Sender: FDA-Public Use
  Company Number: 04P-028-0283743-00

PATIENT
  Age: 37 Year
  Sex: Female
  Weight: 56 kg

DRUGS (13)
  1. HUMIRA [Suspect]
     Indication: RHEUMATOID ARTHRITIS
     Dosage: 1 IN 2 WK, SUBCUTANEOUS
     Route: 058
     Dates: start: 20040921, end: 20041214
  2. METHOTREXATE [Concomitant]
  3. PREDNISONE [Concomitant]
  4. CELECOXIB [Concomitant]
  5. DIDRONEL PMO ^NORWICH EATON^ [Concomitant]
  6. CALCIUM GLUCONATE [Concomitant]
  7. ERGOCALCIFEROL [Concomitant]
  8. ACETAMINOPHEN W/ CODEINE [Concomitant]
  9. HYDROXYCHLOROQUINE PHOSPHATE [Concomitant]
  10. LEFLUNOMIDE [Concomitant]
  11. ETANERCEPT [Concomitant]
  12. GOLD [Concomitant]
  13. SSZ [Concomitant]

REACTIONS (2)
  - IMMUNOSUPPRESSION [None]
  - PNEUMOCYSTIS JIROVECI PNEUMONIA [None]
